FAERS Safety Report 14996702 (Version 1)
Quarter: 2018Q2

REPORT INFORMATION
  Report Type: Spontaneous
  Country: US (occurrence: US)
  Receive Date: 20180611
  Receipt Date: 20180611
  Transmission Date: 20180711
  Serious: Yes (Hospitalization)
  Sender: FDA-Public Use
  Company Number: US-OTSUKA-2018_014629

PATIENT
  Sex: Male

DRUGS (1)
  1. NUEDEXTA [Suspect]
     Active Substance: DEXTROMETHORPHAN HYDROBROMIDE\QUINIDINE SULFATE
     Indication: CRYING
     Dosage: 1 DF, BID
     Route: 065
     Dates: end: 20180601

REACTIONS (2)
  - Ventricular extrasystoles [Unknown]
  - Bradycardia [Unknown]
